FAERS Safety Report 4895834-3 (Version None)
Quarter: 2005Q4

REPORT INFORMATION
  Report Type: 
  Country: None (occurrence: None)
  Receive Date: 20051220
  Receipt Date: 20050916
  Transmission Date: 20060501
  Serious: Yes (Other)
  Sender: FDA-Public Use
  Company Number: PHEH2005US10328

PATIENT
  Sex: Female

DRUGS (4)
  1. VIVELLE [Suspect]
     Dosage: TRANSDERMAL
     Route: 062
  2. PREMPHASE (PREMARIN;CYCRIN 14/14) [Suspect]
  3. PROVERA [Suspect]
  4. MEDROXYPROGESTERONE [Suspect]

REACTIONS (1)
  - BREAST CANCER [None]
